FAERS Safety Report 13288033 (Version 1)
Quarter: 2017Q1

REPORT INFORMATION
  Report Type: Spontaneous
  Country: US (occurrence: US)
  Receive Date: 20170302
  Receipt Date: 20170302
  Transmission Date: 20170428
  Serious: Yes (Other)
  Sender: FDA-Public Use
  Company Number: US-ASTRAZENECA-2017SE20845

PATIENT
  Sex: Male
  Weight: 79.4 kg

DRUGS (6)
  1. RAMIPRIL. [Concomitant]
     Active Substance: RAMIPRIL
     Indication: ANTICOAGULANT THERAPY
     Route: 048
  2. AXIRON [Concomitant]
     Active Substance: TESTOSTERONE
     Dosage: 2 PUMPS UNDER EACH ARM DAILY
     Route: 061
  3. LANTUS [Concomitant]
     Active Substance: INSULIN GLARGINE
     Indication: TYPE 2 DIABETES MELLITUS
     Route: 058
  4. NIACIN. [Concomitant]
     Active Substance: NIACIN
     Indication: ANTICOAGULANT THERAPY
     Route: 048
  5. BYETTA [Suspect]
     Active Substance: EXENATIDE
     Indication: TYPE 2 DIABETES MELLITUS
     Route: 058
  6. METFORMIN [Concomitant]
     Active Substance: METFORMIN HYDROCHLORIDE
     Indication: TYPE 2 DIABETES MELLITUS
     Dosage: 2 PILLS IN THE AM, 1 PILL AT LUNCH, AND 2 PILLS AT SUPPER
     Route: 048

REACTIONS (4)
  - Prostate cancer [Recovering/Resolving]
  - Glaucoma [Not Recovered/Not Resolved]
  - Cataract [Not Recovered/Not Resolved]
  - Prostate infection [Unknown]
